FAERS Safety Report 7132286-7 (Version None)
Quarter: 2010Q4

REPORT INFORMATION
  Report Type: 
  Country: None (occurrence: None)
  Receive Date: 20101202
  Receipt Date: 20101119
  Transmission Date: 20110411
  Serious: Yes (Other)
  Sender: FDA-Public Use
  Company Number: PHHY2010CA79882

PATIENT
  Age: 72 Year
  Sex: Female

DRUGS (4)
  1. DIOVAN [Suspect]
  2. ACTONEL [Concomitant]
  3. CALCIUM [Concomitant]
  4. VITAMIN D [Concomitant]

REACTIONS (11)
  - ANEURYSM [None]
  - ARTHRALGIA [None]
  - CRANIOTOMY [None]
  - DRUG INTOLERANCE [None]
  - INFLAMMATION [None]
  - LIP SWELLING [None]
  - MUSCULOSKELETAL PAIN [None]
  - MYALGIA [None]
  - OSTEOPOROSIS [None]
  - PAIN [None]
  - PELVIC PAIN [None]
